FAERS Safety Report 23628035 (Version 1)
Quarter: 2024Q1

REPORT INFORMATION
  Report Type: Spontaneous
  Country: CA (occurrence: None)
  Receive Date: 20240313
  Receipt Date: 20240313
  Transmission Date: 20240410
  Serious: Yes (Other)
  Sender: FDA-Public Use
  Company Number: CA-ROCHE-3523359

PATIENT
  Age: 55 Year
  Sex: Female

DRUGS (1)
  1. RITUXIMAB [Suspect]
     Active Substance: RITUXIMAB
     Indication: Fibrillary glomerulonephritis
     Route: 041

REACTIONS (6)
  - Condition aggravated [Unknown]
  - Drug ineffective for unapproved indication [Unknown]
  - Infusion site discomfort [Unknown]
  - Nausea [Unknown]
  - Off label use [Unknown]
  - Renal impairment [Unknown]
